FAERS Safety Report 5117546-3 (Version None)
Quarter: 2006Q3

REPORT INFORMATION
  Report Type: 
  Country: None (occurrence: None)
  Receive Date: 20060929
  Receipt Date: 20060726
  Transmission Date: 20061208
  Serious: Yes (Other)
  Sender: FDA-Public Use
  Company Number: JP-ROCHE-458325

PATIENT
  Age: 12 Year
  Sex: Female

DRUGS (3)
  1. TAMIFLU [Suspect]
     Route: 048
     Dates: start: 20060726, end: 20060726
  2. KLARICID [Concomitant]
     Dosage: FORM REPORTED AS ^ORAL FORMULATION^ (NOT OTHERWISE SPECIFIED).
     Route: 048
  3. METHISTA [Concomitant]
     Dosage: FORM REPORTED AS ^ORAL FORMULATION^ (NOT OTHERWISE SPECIFIED).
     Route: 048

REACTIONS (5)
  - DEPRESSED LEVEL OF CONSCIOUSNESS [None]
  - FEAR [None]
  - FEELING ABNORMAL [None]
  - SCREAMING [None]
  - THROAT TIGHTNESS [None]
